FAERS Safety Report 19113585 (Version 1)
Quarter: 2021Q2

REPORT INFORMATION
  Report Type: Spontaneous
  Country: US (occurrence: US)
  Receive Date: 20210409
  Receipt Date: 20210409
  Transmission Date: 20210717
  Serious: Yes (Hospitalization)
  Sender: FDA-Public Use
  Company Number: None

PATIENT
  Age: 28 Year
  Sex: Female
  Weight: 63.1 kg

DRUGS (1)
  1. CRIZANLIZUMAB [Suspect]
     Active Substance: CRIZANLIZUMAB
     Indication: SICKLE CELL ANAEMIA WITH CRISIS
     Route: 042
     Dates: start: 20200831, end: 20200831

REACTIONS (5)
  - Muscle spasms [None]
  - Pain [None]
  - Chills [None]
  - Pyrexia [None]
  - Sepsis [None]

NARRATIVE: CASE EVENT DATE: 20200831
